FAERS Safety Report 11003228 (Version 1)
Quarter: 2015Q2

REPORT INFORMATION
  Report Type: Spontaneous
  Country: US (occurrence: None)
  Receive Date: 20150408
  Receipt Date: 20150408
  Transmission Date: 20150821
  Serious: Yes (Hospitalization)
  Sender: FDA-Public Use
  Company Number: None

PATIENT
  Age: 60 Year
  Sex: Female
  Weight: 77.11 kg

DRUGS (2)
  1. ATORVASTATIN [Suspect]
     Active Substance: ATORVASTATIN
     Indication: CARDIOTOXICITY
     Dosage: 40MG/PLACEBO ORAL DAILY
     Route: 048
     Dates: start: 20150311
  2. ATORVASTATIN [Suspect]
     Active Substance: ATORVASTATIN
     Indication: PROPHYLAXIS
     Dosage: 40MG/PLACEBO ORAL DAILY
     Route: 048
     Dates: start: 20150311

REACTIONS (4)
  - Sepsis [None]
  - Pneumonia [None]
  - Febrile neutropenia [None]
  - Loss of consciousness [None]

NARRATIVE: CASE EVENT DATE: 20150323
